FAERS Safety Report 5086254-X (Version None)
Quarter: 2006Q3

REPORT INFORMATION
  Report Type: 
  Country: None (occurrence: None)
  Receive Date: 20060703
  Receipt Date: 20060217
  Transmission Date: 20061208
  Serious: Yes (Hospitalization)
  Sender: FDA-Public Use
  Company Number: 2006S1001543

PATIENT
  Age: 34 Year
  Sex: Female
  Weight: 63.5036 kg

DRUGS (7)
  1. CLOZAPINE [Suspect]
     Indication: SCHIZOAFFECTIVE DISORDER
     Dosage: SEE IMAGE
     Route: 048
     Dates: end: 20051229
  2. CLOZAPINE [Suspect]
     Indication: SCHIZOAFFECTIVE DISORDER
     Dosage: SEE IMAGE
     Route: 048
     Dates: end: 20051229
  3. ALPRAZOLAM [Concomitant]
  4. ZALEPLON [Concomitant]
  5. ATORVASTATIN CALCIUM [Concomitant]
  6. LEVOTHYROXINE SODIUM [Concomitant]
  7. CARBAMAZEPINE [Concomitant]

REACTIONS (2)
  - CONVULSION [None]
  - GRANULOCYTOPENIA [None]
